FAERS Safety Report 5774816-3 (Version None)
Quarter: 2008Q2

REPORT INFORMATION
  Report Type: 
  Country: None (occurrence: None)
  Receive Date: 20080612
  Receipt Date: 20080604
  Transmission Date: 20081010
  Serious: Yes (Hospitalization)
  Sender: FDA-Public Use
  Company Number: 163-21880-08060282

PATIENT
  Sex: Male

DRUGS (3)
  1. REVLIMID [Suspect]
     Indication: MULTIPLE MYELOMA
     Dosage: 25 MG, DAILY X21 DAYS, ORAL, 10 MG, DAILY X21 DAYS, ORAL, 15 MG, DAILY X21 DAYS, ORAL
     Route: 048
     Dates: start: 20060922, end: 20070401
  2. REVLIMID [Suspect]
     Indication: MULTIPLE MYELOMA
     Dosage: 25 MG, DAILY X21 DAYS, ORAL, 10 MG, DAILY X21 DAYS, ORAL, 15 MG, DAILY X21 DAYS, ORAL
     Route: 048
     Dates: start: 20070409, end: 20071001
  3. REVLIMID [Suspect]
     Indication: MULTIPLE MYELOMA
     Dosage: 25 MG, DAILY X21 DAYS, ORAL, 10 MG, DAILY X21 DAYS, ORAL, 15 MG, DAILY X21 DAYS, ORAL
     Route: 048
     Dates: start: 20071116

REACTIONS (1)
  - MENTAL DISORDER [None]
